FAERS Safety Report 4697979-X (Version None)
Quarter: 2005Q2

REPORT INFORMATION
  Report Type: 
  Country: None (occurrence: None)
  Receive Date: 20050621
  Receipt Date: 20050610
  Transmission Date: 20051028
  Serious: Yes (Hospitalization)
  Sender: FDA-Public Use
  Company Number: 2005086497

PATIENT
  Age: 57 Year
  Sex: Male

DRUGS (6)
  1. MEDROL [Suspect]
     Indication: ILL-DEFINED DISORDER
     Dates: start: 20021010
  2. IMMUNOSUPPRESSIVE AGENTS (IMMUNOSUPPRESSIVE AGENTS) [Suspect]
     Indication: RENAL TRANSPLANT
     Dosage: 5MG/KG, 1 EVERY 8 WEEKS), INTRAVENOUS
     Route: 042
     Dates: start: 20021008
  3. CELLCEPT [Suspect]
     Indication: RENAL TRANSPLANT
     Dates: start: 20021008
  4. ESCITALOPRAM OXALATE [Concomitant]
  5. CLARITINE (LORATADINE) [Concomitant]
  6. POLARAMINE [Concomitant]

REACTIONS (1)
  - TRANSPLANT REJECTION [None]
